FAERS Safety Report 12599473 (Version 1)
Quarter: 2016Q3

REPORT INFORMATION
  Report Type: Spontaneous
  Country: CN (occurrence: CN)
  Receive Date: 20160727
  Receipt Date: 20160727
  Transmission Date: 20161109
  Serious: Yes (Other)
  Sender: FDA-Public Use
  Company Number: CN-009507513-1607CHN007580

PATIENT

DRUGS (1)
  1. FOSAMAX PLUS D [Suspect]
     Active Substance: ALENDRONATE SODIUM\CHOLECALCIFEROL
     Indication: CALCIUM DEFICIENCY
     Dosage: UNK
     Route: 048
     Dates: start: 20160710

REACTIONS (7)
  - Atrial fibrillation [Unknown]
  - Product use issue [Unknown]
  - Blood pressure increased [Unknown]
  - Extrasystoles [Not Recovered/Not Resolved]
  - Pain [Recovering/Resolving]
  - Local swelling [Unknown]
  - Asthenia [Unknown]

NARRATIVE: CASE EVENT DATE: 201607
